FAERS Safety Report 5038483-9 (Version None)
Quarter: 2006Q2

REPORT INFORMATION
  Report Type: 
  Country: None (occurrence: None)
  Receive Date: 20060626
  Receipt Date: 20060626
  Transmission Date: 20061013
  Serious: Yes (Hospitalization)
  Sender: FDA-Public Use
  Company Number: None

PATIENT
  Age: 66 Year
  Sex: Female

DRUGS (2)
  1. ARIPIPRAZOLE [Suspect]
     Indication: BIPOLAR DISORDER
     Dosage: 10 MG QAM PO
     Route: 048
     Dates: start: 20060120, end: 20060131
  2. ARIPIPRAZOLE [Suspect]
     Indication: MANIA
     Dosage: 10 MG QAM PO
     Route: 048
     Dates: start: 20060120, end: 20060131

REACTIONS (2)
  - DRUG INEFFECTIVE [None]
  - INSOMNIA [None]
